FAERS Safety Report 5238355-0 (Version None)
Quarter: 2007Q1

REPORT INFORMATION
  Report Type: 
  Country: None (occurrence: None)
  Receive Date: 20061208
  Receipt Date: 20050222
  Transmission Date: 20070707
  Serious: Yes (Other)
  Sender: FDA-Public Use
  Company Number: 2005UW03217

PATIENT
  Age: 71 Year
  Sex: Female

DRUGS (8)
  1. CRESTOR [Suspect]
     Dosage: 10 MG PO
     Route: 048
     Dates: start: 20050203, end: 20050216
  2. CRESTOR [Suspect]
  3. RAMIPRIL [Concomitant]
  4. SYNTHROID [Concomitant]
  5. TOPROL-XL [Concomitant]
  6. ASPIRIN [Concomitant]
  7. PLAVIX [Concomitant]
  8. NORVASC [Concomitant]

REACTIONS (3)
  - NAUSEA [None]
  - POLYMYOSITIS [None]
  - VOMITING [None]
